FAERS Safety Report 7597328-3 (Version None)
Quarter: 2011Q3

REPORT INFORMATION
  Report Type: 
  Country: None (occurrence: None)
  Receive Date: 20110708
  Receipt Date: 20110627
  Transmission Date: 20111222
  Serious: Yes (Hospitalization)
  Sender: FDA-Public Use
  Company Number: US-ACTELION-A-US2011-50102

PATIENT

DRUGS (1)
  1. TRACLEER [Suspect]
     Indication: PULMONARY ARTERIAL HYPERTENSION
     Dosage: UNK
     Route: 048
     Dates: start: 20050207

REACTIONS (12)
  - SYSTEMIC LUPUS ERYTHEMATOSUS [None]
  - HYPERTENSION [None]
  - DYSPNOEA [None]
  - OXYGEN CONSUMPTION INCREASED [None]
  - CHEST PAIN [None]
  - ANGIOEDEMA [None]
  - OEDEMA [None]
  - PULMONARY ARTERIAL HYPERTENSION [None]
  - PALPITATIONS [None]
  - WHEEZING [None]
  - CHEST DISCOMFORT [None]
  - HEADACHE [None]
